FAERS Safety Report 12903453 (Version 1)
Quarter: 2016Q4

REPORT INFORMATION
  Report Type: Spontaneous
  Country: US (occurrence: US)
  Receive Date: 20161102
  Receipt Date: 20161102
  Transmission Date: 20170207
  Serious: Yes (Other)
  Sender: FDA-Public Use
  Company Number: US-PFIZER INC-9257

PATIENT
  Age: 53 Year
  Sex: Male

DRUGS (1)
  1. METHOTREXATE SODIUM. [Suspect]
     Active Substance: METHOTREXATE SODIUM
     Indication: NON-HODGKIN^S LYMPHOMA
     Dosage: 364 MG, FREQ: ONCE
     Route: 037

REACTIONS (4)
  - Headache [Recovered/Resolved]
  - Accidental overdose [Recovered/Resolved]
  - Drug administration error [Recovered/Resolved]
  - Hypoaesthesia [Recovered/Resolved]
